FAERS Safety Report 17074817 (Version 1)
Quarter: 2019Q4

REPORT INFORMATION
  Report Type: Spontaneous
  Country: US (occurrence: US)
  Receive Date: 20191125
  Receipt Date: 20191125
  Transmission Date: 20200122
  Serious: Yes (Hospitalization)
  Sender: FDA-Public Use
  Company Number: None

PATIENT
  Age: 32 Year
  Sex: Female

DRUGS (1)
  1. PULMOZYME [Suspect]
     Active Substance: DORNASE ALFA
     Indication: CYSTIC FIBROSIS
     Dosage: ?          OTHER ROUTE:ORAL INHALATION?
     Dates: start: 20181207

REACTIONS (3)
  - Cystic fibrosis [None]
  - Condition aggravated [None]
  - Sinusitis [None]

NARRATIVE: CASE EVENT DATE: 20191111
